FAERS Safety Report 23884443 (Version 4)
Quarter: 2024Q3

REPORT INFORMATION
  Report Type: Spontaneous
  Country: US (occurrence: US)
  Receive Date: 20240522
  Receipt Date: 20240731
  Transmission Date: 20241017
  Serious: Yes (Other)
  Sender: JOHNSON AND JOHNSON
  Company Number: US-JNJFOC-20240539396

PATIENT
  Age: 74 Year
  Sex: Male

DRUGS (1)
  1. REMICADE [Suspect]
     Active Substance: INFLIXIMAB
     Indication: Rheumatoid arthritis
     Route: 041

REACTIONS (12)
  - Atrial fibrillation [Unknown]
  - Myocardial infarction [Unknown]
  - Lower respiratory tract infection viral [Unknown]
  - Rheumatoid arthritis [Unknown]
  - Human metapneumovirus test positive [Unknown]
  - Complex regional pain syndrome [Unknown]
  - Hypoaesthesia [Unknown]
  - Bedridden [Unknown]
  - Memory impairment [Unknown]
  - Pruritus [Unknown]
  - Headache [Unknown]
  - Off label use [Unknown]
